FAERS Safety Report 8337242-9 (Version None)
Quarter: 2012Q2

REPORT INFORMATION
  Report Type: 
  Country: None (occurrence: None)
  Receive Date: 20120504
  Receipt Date: 20120425
  Transmission Date: 20120825
  Serious: Yes (Other)
  Sender: FDA-Public Use
  Company Number: EG-SANOFI-AVENTIS-2012SA030783

PATIENT

DRUGS (4)
  1. PEGINTERFERON ALFA-2B [Suspect]
     Route: 065
  2. RIBAVIRIN [Suspect]
     Route: 065
  3. TOCOPHERYL ACETATE [Suspect]
     Route: 065
  4. PENTOXIFYLLINE [Suspect]
     Route: 048

REACTIONS (1)
  - THYROIDITIS [None]
